FAERS Safety Report 9578121 (Version 1)
Quarter: 2013Q4

REPORT INFORMATION
  Report Type: Spontaneous
  Country: US (occurrence: US)
  Receive Date: 20131001
  Receipt Date: 20131001
  Transmission Date: 20140711
  Serious: No
  Sender: FDA-Public Use
  Company Number: US-AMGEN-USASP2013011302

PATIENT
  Sex: Female

DRUGS (2)
  1. ENBREL [Suspect]
     Indication: RHEUMATOID ARTHRITIS
     Dosage: 50 MG, Q2WK
     Route: 058
  2. SUDAFED                            /00076302/ [Concomitant]
     Dosage: 30 MG, UNK
     Route: 048

REACTIONS (3)
  - Oropharyngeal pain [Unknown]
  - Middle ear effusion [Unknown]
  - Pharyngeal disorder [Unknown]
